FAERS Safety Report 4320762-1 (Version None)
Quarter: 2004Q1

REPORT INFORMATION
  Report Type: 
  Country: None (occurrence: None)
  Receive Date: 20040315
  Receipt Date: 20031216
  Transmission Date: 20041129
  Serious: No
  Sender: FDA-Public Use
  Company Number: 2003185097US

PATIENT
  Sex: Female
  Weight: 65.8 kg

DRUGS (2)
  1. BEXTRA [Suspect]
     Indication: PREMENSTRUAL SYNDROME
     Dosage: 20 MG, 2-3 TIMES A MONTH
     Dates: start: 20030201, end: 20031001
  2. TRIAZOLAM [Concomitant]

REACTIONS (3)
  - BLISTER [None]
  - NAIL DISCOLOURATION [None]
  - NAIL PITTING [None]
